FAERS Safety Report 8024344-X (Version None)
Quarter: 2012Q1

REPORT INFORMATION
  Report Type: 
  Country: None (occurrence: None)
  Receive Date: 20120105
  Receipt Date: 20120103
  Transmission Date: 20120608
  Serious: Yes (Other)
  Sender: FDA-Public Use
  Company Number: PHHY2012NL000664

PATIENT
  Sex: Female

DRUGS (3)
  1. ZOMETA [Suspect]
     Dosage: 4 MG/5 ML, ONCE PER 28 DAYS
     Route: 042
     Dates: start: 20110808
  2. ZOMETA [Suspect]
     Dosage: 4 MG/5 ML, ONCE PER 28 DAYS
     Route: 042
     Dates: start: 20111128
  3. ZOMETA [Suspect]
     Indication: BREAST CANCER METASTATIC
     Dosage: 4 MG/5 ML, ONCE PER 28 DAYS
     Route: 042

REACTIONS (3)
  - DYSPNOEA [None]
  - GENERAL PHYSICAL HEALTH DETERIORATION [None]
  - TERMINAL STATE [None]
